FAERS Safety Report 10029538 (Version 1)
Quarter: 2014Q1

REPORT INFORMATION
  Report Type: Spontaneous
  Country: US (occurrence: None)
  Receive Date: 20140320
  Receipt Date: 20140320
  Transmission Date: 20141002
  Serious: Yes (Other)
  Sender: FDA-Public Use
  Company Number: None

PATIENT
  Age: 56 Year
  Sex: Female
  Weight: 77.11 kg

DRUGS (1)
  1. BUPROPION [Suspect]
     Indication: MAJOR DEPRESSION
     Dosage: 1 PILL
     Route: 048
     Dates: start: 20140315, end: 20140316

REACTIONS (6)
  - Product substitution issue [None]
  - Headache [None]
  - Fatigue [None]
  - Mood swings [None]
  - Inappropriate affect [None]
  - Drug ineffective [None]
